FAERS Safety Report 16173358 (Version 2)
Quarter: 2019Q2

REPORT INFORMATION
  Report Type: Spontaneous
  Country: US (occurrence: US)
  Receive Date: 20190409
  Receipt Date: 20190411
  Transmission Date: 20190711
  Serious: No
  Sender: FDA-Public Use
  Company Number: US-PFIZER INC-2019142476

PATIENT
  Sex: Female

DRUGS (1)
  1. ZOLOFT [Suspect]
     Active Substance: SERTRALINE HYDROCHLORIDE
     Dosage: 150 MG, UNK
     Dates: start: 2018

REACTIONS (5)
  - Gastrooesophageal reflux disease [Not Recovered/Not Resolved]
  - Muscle tightness [Unknown]
  - Condition aggravated [Not Recovered/Not Resolved]
  - Dry skin [Unknown]
  - Eye ulcer [Not Recovered/Not Resolved]

NARRATIVE: CASE EVENT DATE: 201811
